FAERS Safety Report 4724926-4 (Version None)
Quarter: 2005Q3

REPORT INFORMATION
  Report Type: 
  Country: None (occurrence: None)
  Receive Date: 20050721
  Receipt Date: 20050705
  Transmission Date: 20060218
  Serious: Yes (Hospitalization)
  Sender: FDA-Public Use
  Company Number: 2005EU001516

PATIENT
  Age: 59 Year

DRUGS (3)
  1. FK506(TACROLIMUS CAPSULES)(TACROLIMUS) CAPSULE [Suspect]
     Indication: LIVER TRANSPLANT
  2. MYCOPHENOLATE MOFETIL (MYCOPHENOLATE MOFETIL) [Suspect]
     Indication: LIVER TRANSPLANT
     Dosage: UNKNOWN /D
  3. CORTICOSTEROIDS (CORTICOSTEROIDS) [Suspect]
     Indication: LIVER TRANSPLANT
     Dosage: UNKNOWN /D

REACTIONS (2)
  - POST PROCEDURAL COMPLICATION [None]
  - WOUND EVISCERATION [None]
